FAERS Safety Report 12865958 (Version 2)
Quarter: 2016Q4

REPORT INFORMATION
  Report Type: Spontaneous
  Country: DK (occurrence: DK)
  Receive Date: 20161020
  Receipt Date: 20161114
  Transmission Date: 20170207
  Serious: Yes (Other)
  Sender: FDA-Public Use
  Company Number: DK-SA-2016SA188102

PATIENT
  Age: 24 Year
  Weight: 140 kg

DRUGS (8)
  1. AVONEX [Concomitant]
     Active Substance: INTERFERON BETA-1A
     Dates: start: 20161027
  2. ALNOK [Concomitant]
     Active Substance: CETIRIZINE HYDROCHLORIDE
     Indication: SEASONAL ALLERGY
     Route: 048
  3. IRON [Concomitant]
     Active Substance: IRON
     Dosage: 1 IN THE MORNING
     Route: 048
  4. AUBAGIO [Suspect]
     Active Substance: TERIFLUNOMIDE
     Route: 048
     Dates: start: 20150603, end: 20160923
  5. METFORMIN [Concomitant]
     Active Substance: METFORMIN HYDROCHLORIDE
     Indication: DIABETES MELLITUS
  6. MICROGYN [Concomitant]
     Active Substance: ETHINYL ESTRADIOL\LEVONORGESTREL
     Indication: CONTRACEPTION
     Dosage: 0.15+0.03MG
  7. DIPRODERM [Concomitant]
     Active Substance: BETAMETHASONE DIPROPIONATE
     Indication: PSORIASIS
     Dosage: CUTANEOUS SOLUTION
  8. CORODIL (ENALAPRIL MALEATE) [Concomitant]
     Active Substance: ENALAPRIL MALEATE
     Indication: HYPERTENSION
     Route: 048

REACTIONS (2)
  - Clinically isolated syndrome [Unknown]
  - Hepatic enzyme increased [Not Recovered/Not Resolved]
